FAERS Safety Report 7331171-5 (Version None)
Quarter: 2011Q1

REPORT INFORMATION
  Report Type: 
  Country: None (occurrence: None)
  Receive Date: 20110228
  Receipt Date: 20110228
  Transmission Date: 20110831
  Serious: Yes (Other)
  Sender: FDA-Public Use
  Company Number: None

PATIENT
  Age: 70 Year
  Sex: Male
  Weight: 59.8748 kg

DRUGS (2)
  1. SIMVASTATIN -ZOCOR- 40 MG SIMVASTATIN 40MG TAB [Suspect]
     Dosage: 30MG ONCE A DAY PO
     Route: 048
     Dates: start: 20101011, end: 20101202
  2. SIMVASTATIN -ZOCOR- 40 MG SIMVASTATIN 40MG TAB [Suspect]
     Dosage: 30MG ONCE A DAY PO
     Route: 048
     Dates: start: 20100909, end: 20101010

REACTIONS (5)
  - AMNESIA [None]
  - NECK PAIN [None]
  - FATIGUE [None]
  - INFLUENZA [None]
  - BACK PAIN [None]
